FAERS Safety Report 6400831-2 (Version None)
Quarter: 2009Q4

REPORT INFORMATION
  Report Type: 
  Country: None (occurrence: None)
  Receive Date: 20091009
  Receipt Date: 20080924
  Transmission Date: 20100525
  Serious: Yes (Other)
  Sender: FDA-Public Use
  Company Number: 2008SP019659

PATIENT

DRUGS (1)
  1. TEMODAR [Suspect]
     Indication: GLIOBLASTOMA
     Dosage: ;PO
     Route: 048
     Dates: end: 20080801

REACTIONS (1)
  - DERMATITIS EXFOLIATIVE [None]
